FAERS Safety Report 4321022-5 (Version None)
Quarter: 2004Q1

REPORT INFORMATION
  Report Type: 
  Country: None (occurrence: None)
  Receive Date: 20040303
  Receipt Date: 20030723
  Transmission Date: 20041129
  Serious: Yes (Hospitalization)
  Sender: FDA-Public Use
  Company Number: 2003SA000132

PATIENT
  Age: 2 Year
  Sex: Female

DRUGS (14)
  1. THYMOGLOBULIN [Suspect]
     Indication: LIVER TRANSPLANT REJECTION
     Dosage: 15 MG DAILY; INTRAVENOUS
     Route: 042
     Dates: start: 20030627, end: 20030701
  2. PROGRAF [Concomitant]
  3. TYLENOL (CAPLET) [Concomitant]
  4. BENADRYL [Concomitant]
  5. HEPARIN [Concomitant]
  6. HYDROCORTISONE [Concomitant]
  7. IBUPROFEN [Concomitant]
  8. BACTRIM [Concomitant]
  9. MAGNESIUM SULFATE [Concomitant]
  10. MEROPENEM [Concomitant]
  11. PREDNISONE [Concomitant]
  12. PROPOFOL [Concomitant]
  13. TACROLIMUS [Concomitant]
  14. MULTIVITAMIN [Concomitant]

REACTIONS (9)
  - BACTERIAL INFECTION [None]
  - BILE CULTURE POSITIVE [None]
  - BLOOD CULTURE POSITIVE [None]
  - CATHETER RELATED COMPLICATION [None]
  - CATHETER SITE INFECTION [None]
  - CATHETER SITE OEDEMA [None]
  - CRYPTOCOCCOSIS [None]
  - CYTOMEGALOVIRUS TEST POSITIVE [None]
  - OEDEMA PERIPHERAL [None]
